FAERS Safety Report 7260713-3 (Version None)
Quarter: 2011Q1

REPORT INFORMATION
  Report Type: 
  Country: None (occurrence: None)
  Receive Date: 20110130
  Receipt Date: 20101221
  Transmission Date: 20110831
  Serious: Yes (Hospitalization)
  Sender: FDA-Public Use
  Company Number: US-ABBOTT-10P-163-0693294-00

PATIENT
  Sex: Female

DRUGS (9)
  1. VISTARIL [Concomitant]
     Indication: INSOMNIA
  2. METHOTREXATE [Concomitant]
     Indication: RHEUMATOID ARTHRITIS
  3. PREDNISONE [Concomitant]
     Indication: RHEUMATOID ARTHRITIS
  4. AMBIEN [Concomitant]
     Indication: INSOMNIA
  5. PERCOCET [Concomitant]
     Indication: PRODUCT USED FOR UNKNOWN INDICATION
  6. HUMIRA [Suspect]
     Indication: RHEUMATOID ARTHRITIS
     Dates: start: 20100831
  7. TRAMADOL HCL [Concomitant]
     Indication: PRODUCT USED FOR UNKNOWN INDICATION
  8. LASIX [Concomitant]
     Indication: PRODUCT USED FOR UNKNOWN INDICATION
  9. ARAVA [Concomitant]
     Indication: RHEUMATOID ARTHRITIS

REACTIONS (2)
  - KIDNEY INFECTION [None]
  - ARTHRITIS [None]
